FAERS Safety Report 4330831-8 (Version None)
Quarter: 2004Q1

REPORT INFORMATION
  Report Type: 
  Country: None (occurrence: None)
  Receive Date: 20040331
  Receipt Date: 20040311
  Transmission Date: 20041129
  Serious: Yes (Other)
  Sender: FDA-Public Use
  Company Number: US_0403101610

PATIENT
  Age: 59 Year
  Sex: Male

DRUGS (8)
  1. CAPASTAT SULFATE [Suspect]
     Indication: TUBERCULOSIS
     Dosage: 1000 MG DAY
  2. CYCLOSERINE [Suspect]
     Indication: TUBERCULOSIS
     Dosage: 750 MG DAY
  3. ISONIAZID [Concomitant]
  4. CIPROFLOXACIN [Concomitant]
  5. PARA AMINOSALICYLIC ACID [Concomitant]
  6. CLOFAZIMINE [Concomitant]
  7. GALENIC/AMOXICILLIN/CLAVULANIC ACID [Concomitant]
  8. PYRIDOXINE [Concomitant]

REACTIONS (7)
  - CONVULSION [None]
  - HYPOAESTHESIA [None]
  - NEUROPATHY PERIPHERAL [None]
  - NEUROTOXICITY [None]
  - PAIN IN EXTREMITY [None]
  - POLYNEUROPATHY [None]
  - VITAMIN B12 DEFICIENCY [None]
